FAERS Safety Report 8074638-7 (Version None)
Quarter: 2012Q1

REPORT INFORMATION
  Report Type: 
  Country: None (occurrence: None)
  Receive Date: 20120126
  Receipt Date: 20120120
  Transmission Date: 20120608
  Serious: Yes (Hospitalization)
  Sender: FDA-Public Use
  Company Number: FR-PFIZER INC-2009204951

PATIENT
  Age: 73 Year
  Sex: Female

DRUGS (12)
  1. RAMIPRIL [Interacting]
     Indication: HYPERTENSION
     Dosage: 10 MG, UNK
     Dates: end: 20090320
  2. PRAZOSIN HCL [Concomitant]
     Dosage: 5 MG, UNK
  3. FLECAINIDE ACETATE [Concomitant]
     Dosage: 100 MG, UNK
  4. GLUCOPHAGE [Concomitant]
     Dosage: 1000 MG, UNK
  5. BYETTA [Interacting]
     Indication: DIABETES MELLITUS
     Dosage: 10 KIU, 2X/DAY
     Route: 058
     Dates: start: 20081001, end: 20090320
  6. ALDACTONE [Suspect]
     Indication: HYPERTENSION
     Dosage: 50 MG, 1X/DAY
     Route: 048
     Dates: end: 20090320
  7. OLMESARTAN MEDOXOMIL AND HYDROCHLOROTHIZIDE [Interacting]
     Indication: HYPERTENSION
     Dosage: 20 MG, UNK
     Route: 048
  8. PREVISCAN [Concomitant]
  9. NIFEDIPINE [Concomitant]
  10. RAMIPRIL [Interacting]
     Dosage: 10 MG, UNK
     Dates: start: 20090322, end: 20090324
  11. CORDARONE [Concomitant]
  12. GLYBURIDE [Concomitant]
     Dosage: 5 MG, UNK

REACTIONS (3)
  - HYPERKALAEMIA [None]
  - DRUG INTERACTION [None]
  - RENAL FAILURE [None]
